FAERS Safety Report 5526659-3 (Version None)
Quarter: 2007Q4

REPORT INFORMATION
  Report Type: 
  Country: None (occurrence: None)
  Receive Date: 20071119
  Receipt Date: 20061027
  Transmission Date: 20080405
  Serious: Yes (Other)
  Sender: FDA-Public Use
  Company Number: 2006BH014290

PATIENT
  Age: 59 Year
  Sex: Male
  Weight: 102.0593 kg

DRUGS (9)
  1. PHENERGAN HCL [Suspect]
     Indication: SEDATION
     Dosage: 25 MG;ONCE;IV
     Route: 042
     Dates: start: 20060627, end: 20060627
  2. ATENOLOL [Concomitant]
  3. HYTRIN [Concomitant]
  4. KLONOPIN [Concomitant]
  5. TRAZODONE HCL [Concomitant]
  6. NEXIUM [Concomitant]
  7. FENTANYL [Concomitant]
  8. VERSED [Concomitant]
  9. SODIUM CHLORIDE 0.9% [Concomitant]

REACTIONS (8)
  - CELLULITIS [None]
  - EXTRAVASATION [None]
  - HYPOAESTHESIA [None]
  - PAIN [None]
  - PARAESTHESIA [None]
  - PHLEBITIS [None]
  - SOFT TISSUE DISORDER [None]
  - THROMBOSIS [None]
